FAERS Safety Report 8921176 (Version 1)
Quarter: 2012Q4

REPORT INFORMATION
  Report Type: 
  Country: TR (occurrence: TR)
  Receive Date: 20121121
  Receipt Date: 20121121
  Transmission Date: 20130627
  Serious: Yes (Death, Other)
  Sender: FDA-Public Use
  Company Number: TR-WATSON-2012-19806

PATIENT
  Age: 76 Year
  Sex: Male

DRUGS (3)
  1. VERAPAMIL HYDROCHLORIDE [Suspect]
     Indication: PRODUCT USED FOR UNKNOWN INDICATION
     Dosage: UNK UNK, tid
     Route: 065
  2. COLCHICINE [Suspect]
     Indication: GOUT
     Dosage: 1 mg, tid
     Route: 065
  3. REPAGLINIDE [Suspect]
     Indication: TYPE 2 DIABETES MELLITUS
     Dosage: 0.5 mg, tid
     Route: 065

REACTIONS (19)
  - Multi-organ failure [Fatal]
  - Systemic inflammatory response syndrome [Fatal]
  - Respiratory failure [Fatal]
  - Sepsis [Not Recovered/Not Resolved]
  - Overdose [Not Recovered/Not Resolved]
  - Drug interaction [Not Recovered/Not Resolved]
  - Diarrhoea [Not Recovered/Not Resolved]
  - Anuria [Not Recovered/Not Resolved]
  - Pyrexia [Not Recovered/Not Resolved]
  - Blood urea increased [Not Recovered/Not Resolved]
  - Blood creatinine increased [Not Recovered/Not Resolved]
  - Bicytopenia [Not Recovered/Not Resolved]
  - Metabolic acidosis [Not Recovered/Not Resolved]
  - Alanine aminotransferase increased [Not Recovered/Not Resolved]
  - Aspartate aminotransferase increased [Not Recovered/Not Resolved]
  - Malaise [None]
  - Fatigue [None]
  - Hepatic failure [None]
  - Condition aggravated [None]
